FAERS Safety Report 4686060-1 (Version None)
Quarter: 2005Q2

REPORT INFORMATION
  Report Type: 
  Country: None (occurrence: None)
  Receive Date: 20050609
  Receipt Date: 20050308
  Transmission Date: 20051028
  Serious: Yes (Other)
  Sender: FDA-Public Use
  Company Number: PHFR2005GB01131

PATIENT
  Age: 49 Year
  Sex: Female

DRUGS (1)
  1. CLOZARIL [Suspect]
     Indication: SCHIZOPHRENIA
     Dosage: 200 MG/DAY
     Dates: start: 20040607, end: 20050301

REACTIONS (7)
  - ARTHRALGIA [None]
  - ARTHRITIS [None]
  - ARTHROPATHY [None]
  - CONSTIPATION [None]
  - LIVER FUNCTION TEST ABNORMAL [None]
  - PAIN IN EXTREMITY [None]
  - WEIGHT INCREASED [None]
